FAERS Safety Report 9143258 (Version 2)
Quarter: 2015Q3

REPORT INFORMATION
  Report Type: Report from Study
  Country: GB (occurrence: GB)
  Receive Date: 20130306
  Receipt Date: 20150825
  Transmission Date: 20151125
  Serious: Yes (Hospitalization)
  Sender: FDA-Public Use
  Company Number: GB-ASTELLAS-2013US002431

PATIENT
  Age: 11 Year
  Sex: Male
  Weight: 55 kg

DRUGS (6)
  1. EPIPEN [Concomitant]
     Active Substance: EPINEPHRINE
     Indication: HYPERSENSITIVITY
     Dosage: UNK UNK, AS NEEDED
     Route: 030
     Dates: start: 200501
  2. SALBUTAMOL [Concomitant]
     Active Substance: ALBUTEROL
     Indication: ASTHMA
     Dosage: UNK UNK, AS NEEDED
     Route: 050
     Dates: start: 2011
  3. TACROLIMUS. [Suspect]
     Active Substance: TACROLIMUS
     Indication: DERMATITIS ATOPIC
     Dosage: 0.03 %, ONCE DAILY
     Route: 061
     Dates: start: 200207
  4. OILATUM                            /00103901/ [Concomitant]
     Indication: DERMATITIS ATOPIC
     Dosage: UNK UNK, AS NEEDED
     Route: 061
     Dates: start: 2012
  5. IPRATROPIUM [Concomitant]
     Active Substance: IPRATROPIUM
     Indication: ASTHMA
     Dosage: UNK UNK, ONCE DAILY
     Route: 050
     Dates: start: 20110901
  6. CETRABEN                           /01007601/ [Concomitant]
     Indication: DERMATITIS ATOPIC
     Dosage: UNK UNK, AS NEEDED
     Route: 061
     Dates: start: 201107

REACTIONS (1)
  - Asthma [Recovered/Resolved]

NARRATIVE: CASE EVENT DATE: 20110831
